FAERS Safety Report 24854930 (Version 1)
Quarter: 2025Q1

REPORT INFORMATION
  Report Type: Spontaneous
  Country: FR (occurrence: FR)
  Receive Date: 20250117
  Receipt Date: 20250117
  Transmission Date: 20250409
  Serious: Yes (Other)
  Sender: NOVARTIS
  Company Number: None

PATIENT
  Age: 19 Year
  Sex: Female
  Weight: 48 kg

DRUGS (1)
  1. DESFERAL [Suspect]
     Active Substance: DEFEROXAMINE MESYLATE
     Indication: Iron overload
     Dosage: 1500 MG, QD (1 INJECTION SOUS CUTAN?E DE 1500MG SUR 12H, TOUS LES JOURS 5 JOURS SUR 7 JOURS)
     Route: 058
     Dates: start: 20240401, end: 20240906

REACTIONS (2)
  - Visual acuity reduced [Recovered/Resolved]
  - Weight decreased [Recovered/Resolved]

NARRATIVE: CASE EVENT DATE: 20240701
